FAERS Safety Report 5827987-4 (Version None)
Quarter: 2008Q3

REPORT INFORMATION
  Report Type: 
  Country: None (occurrence: None)
  Receive Date: 20080728
  Receipt Date: 20080714
  Transmission Date: 20090109
  Serious: Yes (Hospitalization)
  Sender: FDA-Public Use
  Company Number: CLOF-1000032

PATIENT
  Age: 59 Year
  Sex: Male

DRUGS (6)
  1. CLOFARABINE AND/OR ARA-C (CODE NOT BROKEN) SOLUTION FOR INFUSION [Suspect]
     Indication: MYELOID LEUKAEMIA
     Dosage: BLINDED, INFORMATION WITHHELD
     Dates: start: 20071029, end: 20071101
  2. CLOFARABINE AND/OR ARA-C (CODE NOT BROKEN) SOLUTION FOR INFUSION [Suspect]
     Indication: MYELOID LEUKAEMIA
     Dosage: BLINDED, INFORMATION WITHHELD
     Dates: start: 20071105, end: 20071105
  3. CLOFARABINE AND/OR ARA-C (CODE NOT BROKEN) SOLUTION FOR INFUSION [Suspect]
     Indication: MYELOID LEUKAEMIA
     Dosage: BLINDED, INFORMATION WITHHELD
     Dates: start: 20071126, end: 20071130
  4. CYTARABINE [Suspect]
     Indication: MYELOID LEUKAEMIA
     Dosage: 1 G/M2,QD; 1G/M2, ONCE; INTRAVENOUS, 1800 MG,QDX5; INTRAVENOUS
     Route: 042
     Dates: start: 20071029, end: 20071101
  5. CYTARABINE [Suspect]
     Indication: MYELOID LEUKAEMIA
     Dosage: 1 G/M2,QD; 1G/M2, ONCE; INTRAVENOUS, 1800 MG,QDX5; INTRAVENOUS
     Route: 042
     Dates: start: 20071105, end: 20071105
  6. CYTARABINE [Suspect]
     Indication: MYELOID LEUKAEMIA
     Dosage: 1 G/M2,QD; 1G/M2, ONCE; INTRAVENOUS, 1800 MG,QDX5; INTRAVENOUS
     Route: 042
     Dates: start: 20071126, end: 20071130

REACTIONS (16)
  - ADRENAL ADENOMA [None]
  - BACTERIAL INFECTION [None]
  - BLOOD PRESSURE INCREASED [None]
  - FLUID OVERLOAD [None]
  - HERPES ZOSTER [None]
  - HYPOXIA [None]
  - NEPHROCALCINOSIS [None]
  - NEPHROLITHIASIS [None]
  - PLEURAL EFFUSION [None]
  - PNEUMONIA [None]
  - PNEUMONIA HERPES VIRAL [None]
  - POST HERPETIC NEURALGIA [None]
  - RENAL INFARCT [None]
  - THERAPEUTIC RESPONSE DECREASED [None]
  - THROMBOCYTOPENIA [None]
  - TRICUSPID VALVE INCOMPETENCE [None]
